FAERS Safety Report 7317236-2 (Version None)
Quarter: 2011Q1

REPORT INFORMATION
  Report Type: 
  Country: None (occurrence: None)
  Receive Date: 20110226
  Receipt Date: 20101011
  Transmission Date: 20110831
  Serious: No
  Sender: FDA-Public Use
  Company Number: US-ALLERGAN-1013065US

PATIENT
  Age: 42 Year
  Sex: Female
  Weight: 118 kg

DRUGS (2)
  1. BOTOXA? [Suspect]
     Indication: SKIN WRINKLING
     Dosage: 40 UNITS, SINGLE
     Dates: start: 20100331, end: 20100331
  2. BOTOXA? [Suspect]
     Dosage: 40 UNITS, SINGLE
     Dates: start: 20090210, end: 20090210

REACTIONS (4)
  - APHASIA [None]
  - BRADYPHRENIA [None]
  - ANXIETY [None]
  - VISION BLURRED [None]
